FAERS Safety Report 4348999-6 (Version None)
Quarter: 2004Q2

REPORT INFORMATION
  Report Type: 
  Country: None (occurrence: None)
  Receive Date: 20040427
  Receipt Date: 20040427
  Transmission Date: 20050107
  Serious: Yes (Death)
  Sender: FDA-Public Use
  Company Number: None

PATIENT
  Age: 54 Year
  Sex: Male
  Weight: 65 kg

DRUGS (2)
  1. DOXORUBICIN HCL [Suspect]
     Indication: LYMPHOMA
     Dosage: IV
     Route: 042
  2. LISINOPRIL [Concomitant]

REACTIONS (5)
  - ACUTE MYOCARDIAL INFARCTION [None]
  - ACUTE PULMONARY OEDEMA [None]
  - BRADYARRHYTHMIA [None]
  - CARDIAC ARREST [None]
  - HYPOTENSION [None]
